FAERS Safety Report 21399451 (Version 1)
Quarter: 2022Q4

REPORT INFORMATION
  Report Type: Spontaneous
  Country: NL (occurrence: NL)
  Receive Date: 20221001
  Receipt Date: 20221001
  Transmission Date: 20230112
  Serious: Yes (Life-Threatening)
  Sender: FDA-Public Use
  Company Number: None

PATIENT
  Sex: Female
  Weight: 76 kg

DRUGS (3)
  1. HALOPERIDOL [Interacting]
     Active Substance: HALOPERIDOL
     Indication: Delirium
     Dosage: 2 MILLIGRAM DAILY; BRAND NAME NOT SPECIFIED, THERAPY END DATE: ASKU
     Dates: start: 20220907
  2. CITALOPRAM [Interacting]
     Active Substance: CITALOPRAM HYDROBROMIDE
     Indication: Depression
     Dosage: 40 MILLIGRAM DAILY; THERAPY END DATE: ASKU, CITALOPRAM TABLET OMHULD 40MG / CIPRAMIL TABLET OMHULD 4
     Dates: start: 20200101
  3. KALIUMCHLORIDE/NACL [Concomitant]
     Indication: Product used for unknown indication
     Dosage: 3/9 MG/ML (MILLIGRAMS PER MILLILITER),THERAPY START DATE AND END DATE: ASKU, KALIUMCHLORIDE/NACL INF

REACTIONS (2)
  - Drug interaction [Recovered/Resolved]
  - Electrocardiogram QT prolonged [Recovered/Resolved]
